FAERS Safety Report 11283905 (Version 2)
Quarter: 2015Q3

REPORT INFORMATION
  Report Type: Spontaneous
  Country: CN (occurrence: CN)
  Receive Date: 20150720
  Receipt Date: 20150723
  Transmission Date: 20151125
  Serious: Yes (Hospitalization, Other)
  Sender: FDA-Public Use
  Company Number: ALCN2015CN004397

PATIENT
  Age: 39 Year
  Sex: Male

DRUGS (1)
  1. MIOSTAT [Suspect]
     Active Substance: CARBACHOL
     Indication: MIOSIS
     Dosage: 1 DF, UNK
     Route: 031

REACTIONS (1)
  - Glaucoma [Unknown]
